FAERS Safety Report 9340672 (Version 3)
Quarter: 2013Q3

REPORT INFORMATION
  Report Type: Spontaneous
  Country: US (occurrence: US)
  Receive Date: 20130610
  Receipt Date: 20130711
  Transmission Date: 20140515
  Serious: Yes (Hospitalization)
  Sender: FDA-Public Use
  Company Number: US-GLAXOSMITHKLINE-A1026138A

PATIENT
  Sex: Male

DRUGS (3)
  1. FLOLAN [Suspect]
     Indication: COR PULMONALE CHRONIC
     Dosage: 8NGKM CONTINUOUS
     Route: 042
     Dates: start: 20130222
  2. OXYGEN [Concomitant]
  3. TRACLEER [Concomitant]

REACTIONS (5)
  - Dyspnoea exertional [Unknown]
  - Malaise [Unknown]
  - Blood alkaline phosphatase increased [Unknown]
  - Catheter removal [Unknown]
  - Cough [Unknown]
